FAERS Safety Report 20788020 (Version 3)
Quarter: 2022Q2

REPORT INFORMATION
  Report Type: Report from Study
  Country: US (occurrence: None)
  Receive Date: 20220505
  Receipt Date: 20220623
  Transmission Date: 20220721
  Serious: Yes (Hospitalization)
  Sender: FDA-Public Use
  Company Number: US-Merck Healthcare KGaA-9317808

PATIENT
  Sex: Male

DRUGS (2)
  1. REBIF [Suspect]
     Active Substance: INTERFERON BETA-1A
     Indication: Multiple sclerosis
     Route: 058
     Dates: start: 20171005
  2. REBIF [Suspect]
     Active Substance: INTERFERON BETA-1A
     Dates: start: 20220427

REACTIONS (3)
  - Myocardial infarction [Recovering/Resolving]
  - Gastrointestinal disorder [Unknown]
  - Product administration interrupted [Recovered/Resolved]
